FAERS Safety Report 25248269 (Version 1)
Quarter: 2025Q2

REPORT INFORMATION
  Report Type: Spontaneous
  Country: US (occurrence: US)
  Receive Date: 20250429
  Receipt Date: 20250429
  Transmission Date: 20250717
  Serious: No
  Sender: ROCHE
  Company Number: US-ROCHE-10000269108

PATIENT
  Sex: Female

DRUGS (4)
  1. XOLAIR [Suspect]
     Active Substance: OMALIZUMAB
     Indication: Asthma
     Dosage: XOLAIR SDV?STRENGTH: 150 MG/ML
     Route: 058
  2. NORMAL SALINE FLUSH (5ML) [Concomitant]
  3. EPINEPHRINE AUTO-INJ [Concomitant]
  4. GAMMAGARD [Concomitant]
     Active Substance: HUMAN IMMUNOGLOBULIN G

REACTIONS (2)
  - Chills [Unknown]
  - Off label use [Unknown]
